FAERS Safety Report 7701498-3 (Version None)
Quarter: 2011Q3

REPORT INFORMATION
  Report Type: 
  Country: None (occurrence: None)
  Receive Date: 20110822
  Receipt Date: 20110812
  Transmission Date: 20111222
  Serious: Yes (Hospitalization, Other)
  Sender: FDA-Public Use
  Company Number: US-MERCK-1102USA02275

PATIENT
  Age: 57 Year
  Sex: Female
  Weight: 55 kg

DRUGS (6)
  1. HYDROCHLOROTHIAZIDE [Concomitant]
     Indication: HYPERTENSION
     Route: 048
  2. FOSAMAX [Suspect]
     Route: 048
     Dates: start: 20100101, end: 20110101
  3. LISINOPRIL [Concomitant]
     Route: 048
  4. AMLODIPINE [Concomitant]
     Indication: HYPERTENSION
     Route: 065
  5. LOPRESSOR [Concomitant]
     Route: 065
  6. FOSAMAX [Suspect]
     Indication: BONE LOSS
     Route: 048
     Dates: start: 19960101, end: 20070101

REACTIONS (35)
  - BREAST CANCER [None]
  - DYSLIPIDAEMIA [None]
  - FALL [None]
  - PERNICIOUS ANAEMIA [None]
  - NECK PAIN [None]
  - DENTAL CARIES [None]
  - MUSCLE INJURY [None]
  - JOINT INJURY [None]
  - ELECTROCARDIOGRAM ABNORMAL [None]
  - BONE CYST [None]
  - AORTIC STENOSIS [None]
  - BREAST MASS [None]
  - TOOTH DISORDER [None]
  - NAUSEA [None]
  - OSTEONECROSIS [None]
  - FEMORAL NECK FRACTURE [None]
  - PAIN IN EXTREMITY [None]
  - OSTEITIS [None]
  - INTERVERTEBRAL DISC DEGENERATION [None]
  - HYPERTENSION [None]
  - OSTEOPOROSIS [None]
  - ARTHRITIS [None]
  - BACK PAIN [None]
  - FLANK PAIN [None]
  - ANAEMIA [None]
  - PULMONARY ARTERIAL HYPERTENSION [None]
  - DIVERTICULUM [None]
  - FEMUR FRACTURE [None]
  - UTERINE DISORDER [None]
  - CORONARY ARTERY DISEASE [None]
  - MALNUTRITION [None]
  - IRON DEFICIENCY ANAEMIA [None]
  - CAROTID ARTERY OCCLUSION [None]
  - BONE EROSION [None]
  - THROMBOSIS PROPHYLAXIS [None]
